FAERS Safety Report 9968729 (Version 1)
Quarter: 2014Q1

REPORT INFORMATION
  Report Type: Report from Study
  Country: US (occurrence: US)
  Receive Date: 20140306
  Receipt Date: 20140306
  Transmission Date: 20141002
  Serious: No
  Sender: FDA-Public Use
  Company Number: US-ABBVIE-13P-163-1142263-00

PATIENT
  Age: 78 Year
  Sex: Female

DRUGS (10)
  1. HUMIRA [Suspect]
     Indication: CROHN^S DISEASE
     Dates: start: 20130806
  2. HUMIRA [Suspect]
     Dates: start: 20130807
  3. HUMIRA [Suspect]
     Dates: start: 20130820
  4. FENOFIBRATE [Concomitant]
     Indication: PRODUCT USED FOR UNKNOWN INDICATION
  5. XARELTO [Concomitant]
     Indication: PRODUCT USED FOR UNKNOWN INDICATION
  6. BETA PACE [Concomitant]
     Indication: PRODUCT USED FOR UNKNOWN INDICATION
  7. LEVOTHYROXINE [Concomitant]
     Indication: PRODUCT USED FOR UNKNOWN INDICATION
  8. DIAZEPAM [Concomitant]
     Indication: INNER EAR DISORDER
     Dosage: AT BEDTIME
  9. PENTASA [Concomitant]
     Indication: PRODUCT USED FOR UNKNOWN INDICATION
     Dosage: AT MEALS
  10. DOMPERIDONE [Concomitant]
     Indication: PRODUCT USED FOR UNKNOWN INDICATION
     Dosage: BEFORE MEALS

REACTIONS (1)
  - Injection site bruising [Recovered/Resolved]
